FAERS Safety Report 20670903 (Version 3)
Quarter: 2022Q2

REPORT INFORMATION
  Report Type: Report from Study
  Country: US (occurrence: US)
  Receive Date: 20220404
  Receipt Date: 20220625
  Transmission Date: 20220721
  Serious: Yes (Hospitalization, Other)
  Sender: FDA-Public Use
  Company Number: US-TAKEDA-2022TUS021095

PATIENT
  Age: 55 Year
  Sex: Female

DRUGS (10)
  1. TEDUGLUTIDE [Suspect]
     Active Substance: TEDUGLUTIDE
     Indication: Short-bowel syndrome
     Dosage: 2.30 MILLIGRAM, QD
     Route: 042
     Dates: start: 20150207
  2. TEDUGLUTIDE [Suspect]
     Active Substance: TEDUGLUTIDE
     Indication: Short-bowel syndrome
     Dosage: 2.30 MILLIGRAM, QD
     Route: 042
     Dates: start: 20150207
  3. TEDUGLUTIDE [Suspect]
     Active Substance: TEDUGLUTIDE
     Indication: Short-bowel syndrome
     Dosage: 2.30 MILLIGRAM, QD
     Route: 042
     Dates: start: 20150207
  4. TEDUGLUTIDE [Suspect]
     Active Substance: TEDUGLUTIDE
     Indication: Short-bowel syndrome
     Dosage: 2.30 MILLIGRAM, QD
     Route: 042
     Dates: start: 20150207
  5. BELBUCA [Concomitant]
     Active Substance: BUPRENORPHINE HYDROCHLORIDE
     Indication: Abdominal pain
     Dosage: 300 MICROGRAM, BID
     Route: 048
     Dates: start: 20190731, end: 20220201
  6. VANCOMYCIN [Concomitant]
     Active Substance: VANCOMYCIN
     Indication: Staphylococcal infection
     Dosage: 750 MILLIGRAM, BID
     Route: 042
     Dates: start: 20220201, end: 20220220
  7. VANCOMYCIN [Concomitant]
     Active Substance: VANCOMYCIN
     Indication: Septic embolus
  8. VANCOMYCIN [Concomitant]
     Active Substance: VANCOMYCIN
     Indication: Escherichia urinary tract infection
  9. FLUTICASONE [Concomitant]
     Active Substance: FLUTICASONE
     Indication: Rhinitis allergic
     Dosage: 50 MILLIGRAM, QD
     Route: 050
     Dates: start: 20210225
  10. CLOPIDOGREL [Concomitant]
     Active Substance: CLOPIDOGREL BISULFATE
     Indication: Anticoagulant therapy
     Dosage: 75 MILLIGRAM, QD
     Route: 048
     Dates: start: 20210225

REACTIONS (3)
  - Escherichia urinary tract infection [Recovered/Resolved]
  - Staphylococcal bacteraemia [Recovered/Resolved]
  - Septic embolus [Recovered/Resolved]

NARRATIVE: CASE EVENT DATE: 20220121
